FAERS Safety Report 21548591 (Version 1)
Quarter: 2022Q4

REPORT INFORMATION
  Report Type: Spontaneous
  Country: AT (occurrence: AT)
  Receive Date: 20221103
  Receipt Date: 20221103
  Transmission Date: 20230112
  Serious: Yes (Other)
  Sender: FDA-Public Use
  Company Number: AT-ROCHE-3160606

PATIENT
  Sex: Male

DRUGS (16)
  1. CARBOPLATIN [Suspect]
     Active Substance: CARBOPLATIN
     Indication: Diffuse large B-cell lymphoma
     Dosage: PHARMACEUTICAL DOSE FORM ADMIN TEXT: UNKNOWN
     Route: 065
     Dates: start: 20220421, end: 20220601
  2. DOXORUBICIN HYDROCHLORIDE [Suspect]
     Active Substance: DOXORUBICIN HYDROCHLORIDE
     Indication: Diffuse large B-cell lymphoma
     Dosage: PHARMACEUTICAL DOSE FORM ADMIN TEXT: UNKNOWN
     Route: 065
     Dates: start: 20211019, end: 20211101
  3. DOXORUBICIN HYDROCHLORIDE [Suspect]
     Active Substance: DOXORUBICIN HYDROCHLORIDE
     Dosage: PHARMACEUTICAL DOSE FORM ADMIN TEXT: UNKNOWN
     Route: 065
     Dates: start: 20211101, end: 20220401
  4. VINCRISTINE [Suspect]
     Active Substance: VINCRISTINE
     Indication: Diffuse large B-cell lymphoma
     Dosage: PHARMACEUTICAL DOSE FORM ADMIN TEXT: UNKNOWN
     Route: 065
     Dates: start: 20211019, end: 20211101
  5. VINCRISTINE [Suspect]
     Active Substance: VINCRISTINE
     Dosage: PHARMACEUTICAL DOSE FORM ADMIN TEXT: UNKNOWN
     Route: 065
     Dates: start: 20211101, end: 20220401
  6. CYCLOPHOSPHAMIDE [Suspect]
     Active Substance: CYCLOPHOSPHAMIDE
     Indication: Diffuse large B-cell lymphoma
     Dosage: PHARMACEUTICAL DOSE FORM ADMIN TEXT: UNKNOWN
     Route: 065
     Dates: start: 20211101, end: 20220401
  7. CYCLOPHOSPHAMIDE [Suspect]
     Active Substance: CYCLOPHOSPHAMIDE
     Dosage: PHARMACEUTICAL DOSE FORM ADMIN TEXT: UNKNOWN
     Route: 065
     Dates: start: 20211019, end: 20211101
  8. PREDNISONE [Suspect]
     Active Substance: PREDNISONE
     Indication: Diffuse large B-cell lymphoma
     Dosage: PHARMACEUTICAL DOSE FORM ADMIN TEXT: UNKNOWN
     Route: 065
     Dates: start: 20211101, end: 20220401
  9. PREDNISONE [Suspect]
     Active Substance: PREDNISONE
     Dosage: PHARMACEUTICAL DOSE FORM ADMIN TEXT: UNKNOWN
     Route: 065
     Dates: start: 20211019, end: 20211101
  10. ETOPOSIDE [Suspect]
     Active Substance: ETOPOSIDE
     Indication: Diffuse large B-cell lymphoma
     Dosage: PHARMACEUTICAL DOSE FORM ADMIN TEXT: UNKNOWN
     Route: 065
     Dates: start: 20220421, end: 20220601
  11. ETOPOSIDE [Suspect]
     Active Substance: ETOPOSIDE
     Dosage: PHARMACEUTICAL DOSE FORM ADMIN TEXT: UNKNOWN
     Route: 065
     Dates: start: 20211101, end: 20220401
  12. RITUXIMAB [Suspect]
     Active Substance: RITUXIMAB
     Indication: Diffuse large B-cell lymphoma
     Dosage: PHARMACEUTICAL DOSE FORM ADMIN TEXT: UNKNOWN
     Route: 065
     Dates: start: 20220421, end: 20220601
  13. RITUXIMAB [Suspect]
     Active Substance: RITUXIMAB
     Dosage: PHARMACEUTICAL DOSE FORM ADMIN TEXT: UNKNOWN
     Route: 065
     Dates: start: 20211019, end: 20211101
  14. RITUXIMAB [Suspect]
     Active Substance: RITUXIMAB
     Dosage: PHARMACEUTICAL DOSE FORM ADMIN TEXT: UNKNOWN
     Route: 065
     Dates: start: 20211101, end: 20220401
  15. POLATUZUMAB VEDOTIN [Suspect]
     Active Substance: POLATUZUMAB VEDOTIN
     Indication: Diffuse large B-cell lymphoma
     Dosage: PHARMACEUTICAL DOSE FORM ADMIN TEXT: UNKNOWN
     Route: 065
     Dates: start: 20220421, end: 20220601
  16. IFOSFAMIDE [Suspect]
     Active Substance: IFOSFAMIDE
     Indication: Diffuse large B-cell lymphoma
     Dosage: PHARMACEUTICAL DOSE FORM ADMIN TEXT: UNKNOWN
     Route: 065
     Dates: start: 20220421, end: 20220601

REACTIONS (2)
  - Blood lactate dehydrogenase increased [Unknown]
  - Disease progression [Unknown]
